FAERS Safety Report 8388484-8 (Version None)
Quarter: 2012Q2

REPORT INFORMATION
  Report Type: 
  Country: None (occurrence: None)
  Receive Date: 20120525
  Receipt Date: 20120522
  Transmission Date: 20120825
  Serious: Yes (Other)
  Sender: FDA-Public Use
  Company Number: US-ROCHE-1036875

PATIENT
  Sex: Female

DRUGS (3)
  1. TOPROL-XL [Concomitant]
     Indication: HYPERTENSION
  2. LUCENTIS [Suspect]
     Indication: AGE-RELATED MACULAR DEGENERATION
     Route: 050
     Dates: start: 20111205, end: 20120111
  3. VITAMIN TAB [Concomitant]

REACTIONS (1)
  - EPISTAXIS [None]
